FAERS Safety Report 5080468-0 (Version None)
Quarter: 2006Q3

REPORT INFORMATION
  Report Type: 
  Country: None (occurrence: None)
  Receive Date: 20060815
  Receipt Date: 20000616
  Transmission Date: 20061208
  Serious: Yes (Hospitalization)
  Sender: FDA-Public Use
  Company Number: FR-SOLVAY-00200005202

PATIENT
  Age: 24519 Day
  Sex: Male

DRUGS (11)
  1. NITROGLYCERIN [Concomitant]
     Indication: ILL-DEFINED DISORDER
     Dosage: DAILY DOSE: UNK.
     Route: 065
  2. PERINDOPRIL ERBUMINE [Suspect]
     Indication: ACUTE MYOCARDIAL INFARCTION
     Dosage: DAILY DOSE: UNK.
     Route: 048
  3. ATENOLOL [Concomitant]
     Indication: ILL-DEFINED DISORDER
     Dosage: DAILY DOSE: UNK.
     Route: 065
  4. FUROSEMIDE [Concomitant]
     Indication: ILL-DEFINED DISORDER
     Dosage: DAILY DOSE: UNK.
     Route: 065
  5. AMLODIPINE [Concomitant]
     Indication: ILL-DEFINED DISORDER
     Dosage: DAILY DOSE: UNK.
     Route: 065
  6. GLIBENCLAMIDE [Concomitant]
     Indication: ILL-DEFINED DISORDER
     Dosage: DAILY DOSE: UNK.
     Route: 065
  7. PHENFORMIN [Concomitant]
     Indication: ILL-DEFINED DISORDER
     Dosage: DAILY DOSE: UNK. FREQUENCY:UNKNOWN
     Route: 065
  8. SPIRONOLACTONE [Concomitant]
     Indication: ILL-DEFINED DISORDER
     Dosage: DAILY DOSE: UNK.
     Route: 065
  9. ACETYLSALICYLIC ACID SRT [Concomitant]
     Indication: ILL-DEFINED DISORDER
     Dosage: DAILY DOSE: UNK.
     Route: 065
  10. RANITIDINE [Concomitant]
     Indication: ILL-DEFINED DISORDER
     Dosage: DAILY DOSE: UNK.
     Route: 065
  11. DIGOXIN [Concomitant]
     Indication: ILL-DEFINED DISORDER
     Dosage: DAILY DOSE: UNK.
     Route: 065

REACTIONS (2)
  - ACUTE MYOCARDIAL INFARCTION [None]
  - CORONARY ARTERY DISEASE [None]
